FAERS Safety Report 9399186 (Version 2)
Quarter: 2013Q3

REPORT INFORMATION
  Report Type: Spontaneous
  Country: BR (occurrence: None)
  Receive Date: 20130709
  Receipt Date: 20130710
  Transmission Date: 20140515
  Serious: Yes (Other)
  Sender: FDA-Public Use
  Company Number: VAL_02619_2013

PATIENT
  Age: 61 Year
  Sex: Female

DRUGS (10)
  1. SELOZOK [Suspect]
     Indication: HYPERTENSION
     Dosage: 100 MG,  2 50MG TABLETS DAILY ORAL
     Route: 048
     Dates: start: 20130516
  2. APRESOLIN [Suspect]
     Indication: HYPERTENSION
     Dosage: 200MG, 4 TAB;ETS (50MG) DAILY ORAL
     Route: 048
     Dates: start: 20130516, end: 20130523
  3. ACETYLSALICYLIC ACID [Concomitant]
  4. SIMVASTATIN [Concomitant]
  5. FLUOXETINE [Concomitant]
  6. FUROSEMIDE [Concomitant]
  7. AMLOPIDINE [Concomitant]
  8. INSULIN ISOPHANE BOVINE [Concomitant]
  9. CLONAZEPAM [Concomitant]
  10. AMITRIPTYLINE [Concomitant]

REACTIONS (3)
  - Infarction [None]
  - Blood pressure abnormal [None]
  - Blood pressure systolic increased [None]
